FAERS Safety Report 15517594 (Version 1)
Quarter: 2018Q4

REPORT INFORMATION
  Report Type: Spontaneous
  Country: US (occurrence: US)
  Receive Date: 20181017
  Receipt Date: 20181017
  Transmission Date: 20190205
  Serious: Yes (Death)
  Sender: FDA-Public Use
  Company Number: PHEH2018US043926

PATIENT
  Age: 81 Year
  Sex: Female
  Weight: 77.11 kg

DRUGS (1)
  1. KISQALI [Suspect]
     Active Substance: RIBOCICLIB
     Indication: BREAST CANCER
     Dosage: 600 MG, QD
     Route: 048
     Dates: start: 20180927

REACTIONS (6)
  - Metastasis [Fatal]
  - Dehydration [Fatal]
  - Blood urea increased [Fatal]
  - Metastases to bone [Fatal]
  - Blood creatine increased [Fatal]
  - Metastases to lung [Fatal]

NARRATIVE: CASE EVENT DATE: 20181005
